FAERS Safety Report 10703700 (Version 1)
Quarter: 2015Q1

REPORT INFORMATION
  Report Type: Spontaneous
  Country: US (occurrence: US)
  Receive Date: 20150112
  Receipt Date: 20150112
  Transmission Date: 20150721
  Serious: Yes (Death)
  Sender: FDA-Public Use
  Company Number: US-PFIZER INC-2015007085

PATIENT
  Age: 39 Year
  Sex: Male

DRUGS (7)
  1. CAFFEINE. [Suspect]
     Active Substance: CAFFEINE
     Dosage: UNK
  2. ATROPINE SULFATE/DIPHENOXYLATE HYDROCHLORIDE [Suspect]
     Active Substance: ATROPINE SULFATE\DIPHENOXYLATE HYDROCHLORIDE
     Dosage: UNK
  3. ZIPRASIDONE HCL [Suspect]
     Active Substance: ZIPRASIDONE HYDROCHLORIDE
     Dosage: UNK
  4. PAROXETINE [Suspect]
     Active Substance: PAROXETINE\PAROXETINE HYDROCHLORIDE
     Dosage: UNK
  5. TRAMADOL [Suspect]
     Active Substance: TRAMADOL
     Dosage: UNK
  6. AMANTADINE [Suspect]
     Active Substance: AMANTADINE
     Dosage: UNK
  7. HYDROMORPHONE [Suspect]
     Active Substance: HYDROMORPHONE
     Dosage: UNK

REACTIONS (4)
  - Cardiac arrest [Fatal]
  - Exposure via ingestion [None]
  - Completed suicide [Fatal]
  - Respiratory arrest [Fatal]

NARRATIVE: CASE EVENT DATE: 2013
